FAERS Safety Report 4834685-2 (Version None)
Quarter: 2005Q4

REPORT INFORMATION
  Report Type: 
  Country: None (occurrence: None)
  Receive Date: 20051122
  Receipt Date: 20051117
  Transmission Date: 20060501
  Serious: Yes (Other)
  Sender: FDA-Public Use
  Company Number: GB-GLAXOSMITHKLINE-B0401067A

PATIENT
  Age: 59 Year
  Sex: Male
  Weight: 99 kg

DRUGS (5)
  1. AVANDAMET [Suspect]
     Dosage: 400MG TWICE PER DAY
     Route: 048
     Dates: start: 20050808, end: 20050922
  2. SIMVASTATIN [Concomitant]
     Indication: BLOOD CHOLESTEROL INCREASED
     Dosage: 40MG PER DAY
     Route: 065
  3. ASPIRIN [Concomitant]
     Dosage: 75MG PER DAY
     Route: 065
  4. ATENOLOL [Concomitant]
     Dosage: 25MG PER DAY
     Route: 065
  5. METFORMIN [Concomitant]
     Indication: DIABETES MELLITUS
     Route: 065

REACTIONS (2)
  - LIVER FUNCTION TEST ABNORMAL [None]
  - PETECHIAE [None]
